FAERS Safety Report 22299454 (Version 1)
Quarter: 2023Q2

REPORT INFORMATION
  Report Type: Spontaneous
  Country: CA (occurrence: CA)
  Receive Date: 20230509
  Receipt Date: 20230509
  Transmission Date: 20230722
  Serious: Yes (Other)
  Sender: FDA-Public Use
  Company Number: CA-TEVA-2023-CA-2883881

PATIENT
  Age: 63 Year
  Sex: Male

DRUGS (2)
  1. FENTANYL [Suspect]
     Active Substance: FENTANYL
     Indication: Bronchoscopy
     Route: 065
  2. MIDAZOLAM HYDROCHLORIDE [Suspect]
     Active Substance: MIDAZOLAM HYDROCHLORIDE
     Indication: Bronchoscopy
     Dosage: DOSE: 5 MILLIGRAM/MILLILITER
     Route: 065

REACTIONS (2)
  - Hypotension [Unknown]
  - Unresponsive to stimuli [Unknown]
